FAERS Safety Report 20098936 (Version 1)
Quarter: 2021Q4

REPORT INFORMATION
  Report Type: Spontaneous
  Country: NO (occurrence: NO)
  Receive Date: 20211122
  Receipt Date: 20211122
  Transmission Date: 20220303
  Serious: Yes (Hospitalization, Other)
  Sender: FDA-Public Use
  Company Number: NO-MYLANLABS-2021M1085588

PATIENT
  Sex: Female

DRUGS (4)
  1. NAPROXEN [Suspect]
     Active Substance: NAPROXEN
     Indication: Psoriatic arthropathy
     Dosage: UNK
     Dates: start: 20000801, end: 20200908
  2. LORATADINE [Concomitant]
     Active Substance: LORATADINE
     Dosage: UNK
  3. TRUXAL                             /00012101/ [Concomitant]
     Dosage: UNK
  4. METEX                              /00082702/ [Concomitant]
     Dosage: UNK

REACTIONS (2)
  - Chronic kidney disease [Unknown]
  - Injury [Unknown]

NARRATIVE: CASE EVENT DATE: 20200810
